FAERS Safety Report 5387708-9 (Version None)
Quarter: 2007Q3

REPORT INFORMATION
  Report Type: 
  Country: None (occurrence: None)
  Receive Date: 20070716
  Receipt Date: 20070705
  Transmission Date: 20080115
  Serious: Yes (Other)
  Sender: FDA-Public Use
  Company Number: US-JNJFOC-20070701820

PATIENT
  Sex: Male

DRUGS (1)
  1. LEVAQUIN [Suspect]
     Indication: CELLULITIS
     Route: 065

REACTIONS (2)
  - ABNORMAL BEHAVIOUR [None]
  - PERSONALITY CHANGE [None]
